FAERS Safety Report 13059359 (Version 2)
Quarter: 2025Q2

REPORT INFORMATION
  Report Type: Spontaneous
  Country: US (occurrence: US)
  Receive Date: 20161223
  Receipt Date: 20250429
  Transmission Date: 20250716
  Serious: Yes (Death, Other)
  Sender: AUROBINDO
  Company Number: US-MYLANLABS-2016M1057187

PATIENT
  Age: 33 Year

DRUGS (7)
  1. QUININE SULFATE [Interacting]
     Active Substance: QUININE SULFATE
     Indication: Product used for unknown indication
     Route: 065
  2. LOPERAMIDE [Interacting]
     Active Substance: LOPERAMIDE
     Indication: Product used for unknown indication
     Route: 065
  3. LOPERAMIDE [Interacting]
     Active Substance: LOPERAMIDE
     Route: 065
  4. HERBALS\MITRAGYNINE [Interacting]
     Active Substance: HERBALS\MITRAGYNINE
     Indication: Product used for unknown indication
     Route: 065
  5. HERBALS\MITRAGYNINE [Interacting]
     Active Substance: HERBALS\MITRAGYNINE
     Route: 065
  6. HERBALS\MITRAGYNINE [Interacting]
     Active Substance: HERBALS\MITRAGYNINE
     Route: 065
  7. QUINIDINE [Interacting]
     Active Substance: QUINIDINE
     Indication: Product used for unknown indication
     Route: 065

REACTIONS (4)
  - Drug abuse [Fatal]
  - Accidental overdose [Fatal]
  - Drug interaction [Fatal]
  - Toxicity to various agents [Fatal]
